FAERS Safety Report 9309055 (Version 1)
Quarter: 2013Q2

REPORT INFORMATION
  Report Type: Spontaneous
  Country: US (occurrence: US)
  Receive Date: 20130524
  Receipt Date: 20130524
  Transmission Date: 20140414
  Serious: Yes (Other)
  Sender: FDA-Public Use
  Company Number: CHPA2013US008511

PATIENT
  Age: 66 Year
  Sex: Female

DRUGS (3)
  1. EXCEDRIN EXTRA STRENGTH [Suspect]
     Indication: HEADACHE
     Dosage: UNK, UNK
     Route: 048
     Dates: end: 1994
  2. EXCEDRIN EXTRA STRENGTH [Suspect]
     Indication: PAIN
  3. EXCEDRIN PM [Suspect]
     Dosage: UNK, UNK
     Route: 048
     Dates: end: 1994

REACTIONS (1)
  - Epistaxis [Recovered/Resolved]
